FAERS Safety Report 4317098-1 (Version None)
Quarter: 2004Q1

REPORT INFORMATION
  Report Type: 
  Country: None (occurrence: None)
  Receive Date: 20040312
  Receipt Date: 20040301
  Transmission Date: 20041129
  Serious: No
  Sender: FDA-Public Use
  Company Number: 2003148378IE

PATIENT
  Age: 14 Year
  Sex: Female
  Weight: 34 kg

DRUGS (6)
  1. ZYVOX [Suspect]
     Indication: STAPHYLOCOCCAL INFECTION
     Dosage: 330 MG, BID, ORAL
     Route: 048
     Dates: start: 20021216, end: 20021220
  2. LAMICTAL [Concomitant]
  3. LIORESAL [Concomitant]
  4. ROCEPHIN [Concomitant]
  5. OXYGEN (OXYGEN) [Concomitant]
  6. ACETAMINOPHEN [Concomitant]

REACTIONS (1)
  - CONVULSION [None]
